FAERS Safety Report 22758479 (Version 4)
Quarter: 2023Q4

REPORT INFORMATION
  Report Type: Report from Study
  Country: CA (occurrence: CA)
  Receive Date: 20230728
  Receipt Date: 20231004
  Transmission Date: 20240109
  Serious: Yes (Other)
  Sender: FDA-Public Use
  Company Number: CA-JNJFOC-20230433314

PATIENT
  Age: 13 Year
  Sex: Female
  Weight: 59 kg

DRUGS (2)
  1. REMICADE [Suspect]
     Active Substance: INFLIXIMAB
     Indication: Colitis ulcerative
     Dosage: THE PATIENT HAD PRESCRIBED 10 MG/KG 0,1,4 EVERY 4 WEEK.
     Route: 042
     Dates: start: 20230410, end: 2023
  2. REMICADE [Suspect]
     Active Substance: INFLIXIMAB
     Dosage: ON 01-SEP-2023, THE PATIENT RECEIVED 7TH INFLIXIMAB INFUSION AT DOSE OF 700 MG AND PARTIAL MAYO WAS
     Route: 042
     Dates: start: 2023, end: 2023

REACTIONS (5)
  - Colitis ulcerative [Not Recovered/Not Resolved]
  - Drug level abnormal [Unknown]
  - Therapeutic product effect decreased [Unknown]
  - Loss of therapeutic response [Unknown]
  - Off label use [Unknown]

NARRATIVE: CASE EVENT DATE: 20230101
